FAERS Safety Report 6187634-1 (Version None)
Quarter: 2009Q2

REPORT INFORMATION
  Report Type: 
  Country: None (occurrence: None)
  Receive Date: 20090511
  Receipt Date: 20090428
  Transmission Date: 20091009
  Serious: Yes (Other)
  Sender: FDA-Public Use
  Company Number: 2009AL001154

PATIENT
  Age: 57 Year
  Sex: Female
  Weight: 52.6173 kg

DRUGS (16)
  1. DIGOXIN [Suspect]
     Dosage: 0.125MG, DAILY, PO
     Route: 048
  2. DIGOXIN [Suspect]
     Dosage: 0.25MG, DAILY, PO
     Route: 048
     Dates: start: 20081016
  3. AMOXICILLIN [Concomitant]
  4. LINCOCIN [Concomitant]
  5. KENALOG [Concomitant]
  6. KLOR-CON [Concomitant]
  7. QUINAPRIL [Concomitant]
  8. SERTRALINE HCL [Concomitant]
  9. CARVEDILOL [Concomitant]
  10. FUROSEMIDE [Concomitant]
  11. WARFARIN SODIUM [Concomitant]
  12. ZOCOR [Concomitant]
  13. MOMETASONE FUROATE [Concomitant]
  14. COUMADIN [Concomitant]
  15. COREG [Concomitant]
  16. ACCUPRIL [Concomitant]

REACTIONS (8)
  - CERUMEN IMPACTION [None]
  - CHEST DISCOMFORT [None]
  - DYSPNOEA [None]
  - EAR DISCOMFORT [None]
  - HYPERTENSION [None]
  - MUCOSAL INFLAMMATION [None]
  - NASOPHARYNGITIS [None]
  - PARAESTHESIA [None]
